FAERS Safety Report 25709473 (Version 1)
Quarter: 2025Q3

REPORT INFORMATION
  Report Type: Report from Study
  Country: US (occurrence: US)
  Receive Date: 20250821
  Receipt Date: 20250821
  Transmission Date: 20251021
  Serious: Yes (Hospitalization)
  Sender: AVERITAS
  Company Number: US-GRUNENTHAL-2025-113013

PATIENT
  Sex: Male

DRUGS (1)
  1. QUTENZA [Suspect]
     Active Substance: CAPSAICIN
     Indication: Diabetic neuropathy
     Route: 061
     Dates: start: 2025, end: 2025

REACTIONS (2)
  - Adverse event [Unknown]
  - Pain [Unknown]
